FAERS Safety Report 20110883 (Version 3)
Quarter: 2023Q1

REPORT INFORMATION
  Report Type: Spontaneous
  Country: CN (occurrence: None)
  Receive Date: 20211124
  Receipt Date: 20230111
  Transmission Date: 20230417
  Serious: Yes (Other)
  Sender: FDA-Public Use
  Company Number: CN-ROCHE-2964116

PATIENT
  Age: 65 Year
  Sex: Male

DRUGS (35)
  1. XELODA [Suspect]
     Active Substance: CAPECITABINE
     Indication: Colon cancer
     Dosage: OXALIPLATIN + CAPECITABINE FOR 6 CYCLES
     Route: 048
  2. XELODA [Suspect]
     Active Substance: CAPECITABINE
     Dosage: ON DAY1-14.
     Route: 065
     Dates: start: 20210410
  3. XELODA [Suspect]
     Active Substance: CAPECITABINE
     Dosage: BEVACIZUMAB+XELOX
     Route: 065
     Dates: start: 20220107
  4. XELODA [Suspect]
     Active Substance: CAPECITABINE
     Dosage: OXALIPLATIN + CAPECITABINE FOR 6 CYCLES
     Route: 065
  5. XELODA [Suspect]
     Active Substance: CAPECITABINE
     Dosage: BEVACIZUMAB + CAPECITABINE
     Route: 065
     Dates: start: 2021
  6. AVASTIN [Suspect]
     Active Substance: BEVACIZUMAB
     Indication: Colon cancer
     Dosage: BEVACIZUMAB + FOLIRL FOR 4 CYCLES, ON DAY 1
     Route: 041
     Dates: start: 20200625
  7. AVASTIN [Suspect]
     Active Substance: BEVACIZUMAB
     Dosage: ON 19 AUG 2020 AND 04 SEP 2020, BEVACIZUMAB + FOLIRL CHEMOTHERAPY
     Route: 041
  8. AVASTIN [Suspect]
     Active Substance: BEVACIZUMAB
     Dosage: ON 16 DEC 2020, 30 DEC 2020 AND 15 JAN 2021, BEVACIZUMAB + FOLIRL CHEMOTHERAPY
     Route: 041
  9. AVASTIN [Suspect]
     Active Substance: BEVACIZUMAB
     Dosage: BEVACIZUMAB + FOLIRL FOR 3 CYCLES
     Route: 065
     Dates: start: 202102, end: 202103
  10. AVASTIN [Suspect]
     Active Substance: BEVACIZUMAB
     Dosage: ON DAY 1
     Route: 065
     Dates: start: 20210410, end: 20210805
  11. AVASTIN [Suspect]
     Active Substance: BEVACIZUMAB
     Dosage: BEVACIZUMAB + CAPECITABINE
     Route: 065
  12. AVASTIN [Suspect]
     Active Substance: BEVACIZUMAB
     Dosage: ON DAY 1
     Route: 041
     Dates: start: 20211102, end: 20211124
  13. AVASTIN [Suspect]
     Active Substance: BEVACIZUMAB
     Dosage: BEVACIZUMAB+FOLFOX
     Route: 065
     Dates: start: 20220107
  14. OXALIPLATIN [Concomitant]
     Active Substance: OXALIPLATIN
     Indication: Colon cancer
     Dosage: 02-NOV-2021 AND 24-NOV-2021, ON DAY 1
     Route: 041
     Dates: start: 20211102
  15. OXALIPLATIN [Concomitant]
     Active Substance: OXALIPLATIN
     Dosage: OXALIPLATIN + CAPECITABINE FOR 6 CYCLES
     Route: 065
  16. OXALIPLATIN [Concomitant]
     Active Substance: OXALIPLATIN
     Dosage: BEVACIZUMAB+XELOX
     Route: 065
     Dates: start: 20220107
  17. IRINOTECAN [Concomitant]
     Active Substance: IRINOTECAN
     Indication: Colon cancer
     Dosage: BEVACIZUMAB + FOLIRL FOR 4 CYCLES, ON DAY 1
     Route: 041
     Dates: start: 20200625
  18. IRINOTECAN [Concomitant]
     Active Substance: IRINOTECAN
     Dosage: BEVACIZUMAB + FOLIRL FOR 3 CYCLES
     Dates: start: 202102, end: 202103
  19. IRINOTECAN [Concomitant]
     Active Substance: IRINOTECAN
     Dosage: ON 16 DEC 2020, 30 DEC 2020 AND 15 JAN 2021, BEVACIZUMAB + FOLIRL?CHEMOTHERAPY
  20. IRINOTECAN [Concomitant]
     Active Substance: IRINOTECAN
     Dosage: BEVACIZUMAB + FOLIRL FOR 3 CYCLES
     Dates: start: 202102, end: 202103
  21. LEVOLEUCOVORIN CALCIUM [Concomitant]
     Active Substance: LEVOLEUCOVORIN CALCIUM
     Indication: Colon cancer
     Dosage: BEVACIZUMAB + FOLIRL FOR 4 CYCLES, ON DAY 1
     Route: 041
     Dates: start: 20200625
  22. LEVOLEUCOVORIN CALCIUM [Concomitant]
     Active Substance: LEVOLEUCOVORIN CALCIUM
     Dosage: BEVACIZUMAB + FOLIRL FOR 3 CYCLES
     Dates: start: 202102, end: 202103
  23. LEVOLEUCOVORIN CALCIUM [Concomitant]
     Active Substance: LEVOLEUCOVORIN CALCIUM
     Dosage: ON 16 DEC 2020, 30 DEC 2020 AND 15 JAN 2021, BEVACIZUMAB + FOLIRL?CHEMOTHERAPY
  24. LEVOLEUCOVORIN CALCIUM [Concomitant]
     Active Substance: LEVOLEUCOVORIN CALCIUM
     Dosage: BEVACIZUMAB + FOLIRL FOR 3 CYCLES
     Dates: start: 202102, end: 202103
  25. LEVOLEUCOVORIN CALCIUM [Concomitant]
     Active Substance: LEVOLEUCOVORIN CALCIUM
     Dosage: BEVACIZUMAB + FOLFOX
     Dates: start: 20220107
  26. FLUOROURACIL [Concomitant]
     Active Substance: FLUOROURACIL
     Indication: Colon cancer
     Dosage: BEVACIZUMAB + FOLIRL FOR 4 CYCLES
     Route: 042
     Dates: start: 20200625
  27. FLUOROURACIL [Concomitant]
     Active Substance: FLUOROURACIL
     Dosage: BEVACIZUMAB + FOLIRL FOR 3 CYCLES
     Dates: start: 202102, end: 202103
  28. FLUOROURACIL [Concomitant]
     Active Substance: FLUOROURACIL
     Dosage: ON 16 DEC 2020, 30 DEC 2020 AND 15 JAN 2021, BEVACIZUMAB + FOLIRL?CHEMOTHERAPY
  29. FLUOROURACIL [Concomitant]
     Active Substance: FLUOROURACIL
     Dosage: BEVACIZUMAB + FOLIRL FOR 3 CYCLES
     Dates: start: 202102, end: 202103
  30. FLUOROURACIL [Concomitant]
     Active Substance: FLUOROURACIL
     Dosage: BEVACIZUMAB +FLUOROURACIL
     Dates: start: 20210410, end: 20210805
  31. FLUOROURACIL [Concomitant]
     Active Substance: FLUOROURACIL
     Dosage: 02-NOV-2021 AND 24-NOV-2021, ON DAY 1
     Route: 041
  32. FLUOROURACIL [Concomitant]
     Active Substance: FLUOROURACIL
     Dosage: BEVACIZUMAB+FOLFOX
     Dates: start: 20220107
  33. MANNITOL [Concomitant]
     Active Substance: MANNITOL
     Dates: start: 20200624
  34. REGORAFENIB [Concomitant]
     Active Substance: REGORAFENIB
     Indication: Colon cancer
     Route: 065
     Dates: start: 20220307
  35. TISLELIZUMAB [Concomitant]
     Active Substance: TISLELIZUMAB
     Route: 041
     Dates: start: 20220713

REACTIONS (2)
  - Myelosuppression [Unknown]
  - Palmar-plantar erythrodysaesthesia syndrome [Unknown]
